FAERS Safety Report 4974670-3 (Version None)
Quarter: 2006Q2

REPORT INFORMATION
  Report Type: 
  Country: None (occurrence: None)
  Receive Date: 20060417
  Receipt Date: 20050105
  Transmission Date: 20061013
  Serious: Yes (Hospitalization, Other)
  Sender: FDA-Public Use
  Company Number: US-MERCK-0501USA00569

PATIENT
  Age: 87 Year
  Sex: Female
  Weight: 62 kg

DRUGS (1)
  1. VIOXX [Suspect]
     Indication: ARTHRITIS
     Route: 048
     Dates: start: 20000901, end: 20010601

REACTIONS (20)
  - ANAEMIA [None]
  - ARTHRITIS [None]
  - BACK PAIN [None]
  - CEREBROVASCULAR ACCIDENT [None]
  - CHRONIC OBSTRUCTIVE PULMONARY DISEASE [None]
  - CONSTIPATION [None]
  - DEPRESSION [None]
  - DYSPHAGIA [None]
  - ELECTROLYTE IMBALANCE [None]
  - HYPOTHYROIDISM [None]
  - JOINT SWELLING [None]
  - LOCALISED INFECTION [None]
  - MUSCLE SPASMS [None]
  - MUSCULOSKELETAL CHEST PAIN [None]
  - ORAL FUNGAL INFECTION [None]
  - REFUSAL OF TREATMENT BY PATIENT [None]
  - SYNCOPE [None]
  - TRANSIENT ISCHAEMIC ATTACK [None]
  - VENOUS INSUFFICIENCY [None]
  - VULVOVAGINAL MYCOTIC INFECTION [None]
